FAERS Safety Report 13849397 (Version 1)
Quarter: 2017Q3

REPORT INFORMATION
  Report Type: Spontaneous
  Country: US (occurrence: US)
  Receive Date: 20170808
  Receipt Date: 20170808
  Transmission Date: 20171127
  Serious: Yes (Life-Threatening)
  Sender: FDA-Public Use
  Company Number: None

PATIENT
  Age: 76 Year
  Sex: Female
  Weight: 85.1 kg

DRUGS (5)
  1. PRAVASTATIN SODIUM. [Concomitant]
     Active Substance: PRAVASTATIN SODIUM
  2. REGORAFENIB 80MG BAYER [Suspect]
     Active Substance: REGORAFENIB
     Indication: COLON CANCER METASTATIC
     Route: 048
     Dates: start: 20170221
  3. ATENOLOL. [Concomitant]
     Active Substance: ATENOLOL
  4. ZOLPIDEM TARTRATE. [Concomitant]
     Active Substance: ZOLPIDEM TARTRATE
  5. AMLODIPINE BESYLATE. [Concomitant]
     Active Substance: AMLODIPINE BESYLATE

REACTIONS (6)
  - Hypoaesthesia [None]
  - Transient ischaemic attack [None]
  - Carotid arteriosclerosis [None]
  - Cerebral atrophy [None]
  - Hypertension [None]
  - Dysarthria [None]

NARRATIVE: CASE EVENT DATE: 20170802
